FAERS Safety Report 14871878 (Version 2)
Quarter: 2018Q2

REPORT INFORMATION
  Report Type: Report from Study
  Country: US (occurrence: HU)
  Receive Date: 20180509
  Receipt Date: 20180516
  Transmission Date: 20180711
  Serious: Yes (Disabling)
  Sender: FDA-Public Use
  Company Number: US-SUNOVION-2018SUN001876

PATIENT

DRUGS (3)
  1. INDACATEROL AND GLYCOPYRROLATE [Suspect]
     Active Substance: GLYCOPYRROLATE\INDACATEROL MALEATE
     Indication: CHRONIC OBSTRUCTIVE PULMONARY DISEASE
     Dosage: 2 DF, QD
     Route: 055
     Dates: start: 20180418
  2. SYNCUMAR [Concomitant]
     Active Substance: ACENOCOUMAROL
     Dosage: UNK
  3. RETAFYLLIN [Concomitant]
     Active Substance: THEOPHYLLINE
     Dosage: UNK

REACTIONS (6)
  - Choking sensation [Unknown]
  - Dyspnoea [Unknown]
  - Smoke sensitivity [Unknown]
  - Weight decreased [Recovered/Resolved]
  - Gait disturbance [Unknown]
  - Cough [Unknown]
